FAERS Safety Report 7523454-0 (Version None)
Quarter: 2011Q2

REPORT INFORMATION
  Report Type: 
  Country: None (occurrence: None)
  Receive Date: 20110603
  Receipt Date: 20110523
  Transmission Date: 20111010
  Serious: Yes (Hospitalization, Other)
  Sender: FDA-Public Use
  Company Number: PHHY2011US38073

PATIENT
  Sex: Female

DRUGS (4)
  1. ZOLPIDEM [Concomitant]
  2. EXJADE [Suspect]
     Indication: MYELODYSPLASTIC SYNDROME
     Dosage: 1500 MG, QD
     Route: 048
     Dates: start: 20110308, end: 20110418
  3. LISINOPRIL [Concomitant]
  4. PROCRIT [Concomitant]

REACTIONS (4)
  - POST PROCEDURAL INFECTION [None]
  - NAUSEA [None]
  - DIARRHOEA [None]
  - BREAST CANCER [None]
